FAERS Safety Report 15546913 (Version 1)
Quarter: 2018Q4

REPORT INFORMATION
  Report Type: Spontaneous
  Country: US (occurrence: US)
  Receive Date: 20181024
  Receipt Date: 20181024
  Transmission Date: 20190205
  Serious: Yes (Other)
  Sender: FDA-Public Use
  Company Number: US-TAKEDA-2018TUS011935

PATIENT

DRUGS (29)
  1. NEXIUM [Suspect]
     Active Substance: ESOMEPRAZOLE MAGNESIUM
     Dosage: 40 MG, QD
     Route: 048
     Dates: start: 200508, end: 2008
  2. PEPCID AC [Concomitant]
     Active Substance: FAMOTIDINE
     Dosage: UNK
     Dates: start: 2009
  3. POTASSIUM [Concomitant]
     Active Substance: POTASSIUM
     Indication: ANXIETY
  4. POTASSIUM [Concomitant]
     Active Substance: POTASSIUM
     Indication: MULTIPLE ALLERGIES
  5. TAGAMET HB [Concomitant]
     Active Substance: CIMETIDINE
     Dosage: UNK
     Dates: start: 2013
  6. PROTONIX [Suspect]
     Active Substance: PANTOPRAZOLE SODIUM
     Indication: GASTROOESOPHAGEAL REFLUX DISEASE
     Dosage: UNK
     Route: 048
     Dates: start: 2003, end: 2015
  7. PEPCID COMPLETE                    /01596501/ [Concomitant]
     Dosage: UNK
     Dates: start: 2011
  8. VITAMIN D                          /00107901/ [Concomitant]
     Active Substance: ERGOCALCIFEROL
     Indication: HYPOVITAMINOSIS
     Dosage: UNK
     Dates: start: 2016
  9. SUBOXONE [Concomitant]
     Active Substance: BUPRENORPHINE HYDROCHLORIDE\NALOXONE HYDROCHLORIDE
     Indication: PAIN
     Dosage: UNK, AS NEEDED
     Dates: start: 2012, end: 2017
  10. PROTONIX [Suspect]
     Active Substance: PANTOPRAZOLE SODIUM
     Dosage: 40 MG, QD
     Route: 048
     Dates: start: 2005
  11. OMEPRAZOLE. [Suspect]
     Active Substance: OMEPRAZOLE
     Indication: GASTROOESOPHAGEAL REFLUX DISEASE
     Dosage: 20 MG, QD
     Route: 048
     Dates: start: 201212
  12. POTASSIUM [Concomitant]
     Active Substance: POTASSIUM
     Indication: BLOOD POTASSIUM DECREASED
     Dosage: UNK
     Dates: start: 2007
  13. POTASSIUM [Concomitant]
     Active Substance: POTASSIUM
     Indication: NEURALGIA
  14. POTASSIUM [Concomitant]
     Active Substance: POTASSIUM
     Indication: MUSCLE RELAXANT THERAPY
  15. HYDROCODONE BITARTRATE AND ACETAMINOPHEN [Concomitant]
     Active Substance: ACETAMINOPHEN\HYDROCODONE BITARTRATE
     Indication: PAIN
     Dosage: UNK, AS NEEDED
     Dates: start: 2004, end: 2017
  16. VITAMIN D2 [Concomitant]
     Active Substance: ERGOCALCIFEROL
     Indication: ROUTINE HEALTH MAINTENANCE
     Dosage: UNK
     Dates: start: 2017
  17. OXYCODONE/ACETAMINOPHEN [Concomitant]
     Active Substance: ACETAMINOPHEN\OXYCODONE HYDROCHLORIDE
     Indication: PAIN
     Dosage: UNK, AS NEEDED
     Dates: start: 2016
  18. MELOXICAM. [Concomitant]
     Active Substance: MELOXICAM
     Indication: ARTHRITIS
     Dosage: UNK, AS NEEDED
     Dates: start: 2013, end: 2016
  19. NEXIUM [Suspect]
     Active Substance: ESOMEPRAZOLE MAGNESIUM
     Indication: GASTROOESOPHAGEAL REFLUX DISEASE
     Dosage: UNK
     Route: 048
     Dates: start: 2003, end: 2015
  20. ZANTAC [Concomitant]
     Active Substance: RANITIDINE HYDROCHLORIDE
     Dosage: UNK
     Dates: start: 2015
  21. POTASSIUM [Concomitant]
     Active Substance: POTASSIUM
     Indication: ARTHRITIS
  22. TRAZODONE [Concomitant]
     Active Substance: TRAZODONE HYDROCHLORIDE
     Indication: DEPRESSION
     Dosage: UNK
     Dates: start: 2014, end: 2016
  23. POTASSIUM [Concomitant]
     Active Substance: POTASSIUM
     Indication: PAIN
  24. ZANTAC 75 [Concomitant]
     Active Substance: RANITIDINE HYDROCHLORIDE
     Dosage: UNK
     Dates: start: 2015
  25. POTASSIUM [Concomitant]
     Active Substance: POTASSIUM
     Indication: BIPOLAR DISORDER
  26. PANTOPRAZOLE [Suspect]
     Active Substance: PANTOPRAZOLE
     Indication: GASTROOESOPHAGEAL REFLUX DISEASE
     Dosage: 40 MG, QD
     Route: 048
     Dates: start: 2010, end: 2013
  27. DEXILANT [Suspect]
     Active Substance: DEXLANSOPRAZOLE
     Indication: GASTROOESOPHAGEAL REFLUX DISEASE
     Dosage: 60 MG, QD
     Route: 048
     Dates: start: 201112, end: 201209
  28. POTASSIUM [Concomitant]
     Active Substance: POTASSIUM
     Indication: DEPRESSION
  29. OSTEO-BI-FLEX [Concomitant]
     Indication: ARTHRALGIA
     Dosage: UNK
     Dates: start: 201611

REACTIONS (2)
  - Chronic kidney disease [Not Recovered/Not Resolved]
  - Acute kidney injury [Unknown]
